FAERS Safety Report 7119204-2 (Version None)
Quarter: 2010Q4

REPORT INFORMATION
  Report Type: 
  Country: None (occurrence: None)
  Receive Date: 20101028
  Receipt Date: 20100712
  Transmission Date: 20110411
  Serious: Yes (Death, Hospitalization)
  Sender: FDA-Public Use
  Company Number: A-NJ2010-38529

PATIENT
  Age: 44 Year
  Sex: Female
  Weight: 67.2 kg

DRUGS (4)
  1. EPOPROSTENOL SODIUM [Suspect]
     Indication: PULMONARY ARTERIAL HYPERTENSION
     Dosage: 8.5 NG/KG, PER MIN, IV DRIP
     Route: 041
     Dates: start: 20100701, end: 20100708
  2. FLOLAN [Concomitant]
  3. AMBRISENTAN (AMBRISENTAN) [Concomitant]
  4. SILDENAFIL CITRATE [Concomitant]

REACTIONS (3)
  - HAEMOPTYSIS [None]
  - RENAL FAILURE [None]
  - RESPIRATORY FAILURE [None]
